FAERS Safety Report 4737429-8 (Version None)
Quarter: 2005Q3

REPORT INFORMATION
  Report Type: 
  Country: None (occurrence: None)
  Receive Date: 20050803
  Receipt Date: 20050608
  Transmission Date: 20060218
  Serious: Yes (Hospitalization)
  Sender: FDA-Public Use
  Company Number: EWC050744985

PATIENT
  Age: 65 Year
  Sex: Female

DRUGS (7)
  1. HUMULIN N [Suspect]
     Indication: DIABETES MELLITUS
     Dosage: 49 IU DAY
     Dates: start: 19580401
  2. HUMULIN R [Suspect]
     Indication: DIABETES MELLITUS
     Dosage: 52 IU DAY
     Dates: start: 19980401
  3. BETALOC ZOK (METOPROLOL SUCCINATE) [Concomitant]
  4. ENALAPRIL MALEATE AND HYDROCHLOROTHIAZIDE [Concomitant]
  5. SEDUXEN (DIAZEPAM) [Concomitant]
  6. RUTASCORBIN [Concomitant]
  7. ADIMET (METFORMIN HYDROCHLORIDE) [Concomitant]

REACTIONS (3)
  - BACTERIURIA [None]
  - CATARACT OPERATION [None]
  - DEVICE FAILURE [None]
